FAERS Safety Report 10761977 (Version 1)
Quarter: 2015Q1

REPORT INFORMATION
  Report Type: Spontaneous
  Country: US (occurrence: None)
  Receive Date: 20150128
  Receipt Date: 20150128
  Transmission Date: 20150721
  Serious: Yes (Other)
  Sender: FDA-Public Use
  Company Number: 1453787

PATIENT
  Age: 65 Year
  Sex: Female

DRUGS (1)
  1. RITUXAN [Suspect]
     Active Substance: RITUXIMAB
     Indication: RHEUMATOID ARTHRITIS
     Dosage: 2 IN 1 M
     Route: 042
     Dates: start: 2009, end: 20140516

REACTIONS (2)
  - Pneumonia [None]
  - Cardiac failure [None]

NARRATIVE: CASE EVENT DATE: 20140516
